FAERS Safety Report 23701242 (Version 1)
Quarter: 2024Q2

REPORT INFORMATION
  Report Type: Spontaneous
  Country: US (occurrence: None)
  Receive Date: 20240402
  Receipt Date: 20240402
  Transmission Date: 20240716
  Serious: No
  Sender: FDA-Public Use
  Company Number: None

PATIENT
  Age: 34 Year
  Sex: Female
  Weight: 58.06 kg

DRUGS (4)
  1. CIMZIA [Suspect]
     Active Substance: CERTOLIZUMAB PEGOL
     Indication: Rheumatoid arthritis
     Dosage: 400MG OTHER SUBCUTNEOUS
     Route: 058
     Dates: start: 20240130, end: 20240213
  2. VITMIN C [Concomitant]
  3. DELTA D3 [Concomitant]
  4. TUMERIC ROOT EXTRACT [Concomitant]

REACTIONS (2)
  - Peripheral swelling [None]
  - Periorbital swelling [None]

NARRATIVE: CASE EVENT DATE: 20240305
